FAERS Safety Report 18665348 (Version 1)
Quarter: 2020Q4

REPORT INFORMATION
  Report Type: Report from Study
  Country: FR (occurrence: FR)
  Receive Date: 20201225
  Receipt Date: 20201225
  Transmission Date: 20210114
  Serious: Yes (Death, Life-Threatening, Hospitalization, Other)
  Sender: FDA-Public Use
  Company Number: FR-TAKEDA-2020TEU008275

PATIENT
  Age: 74 Year
  Sex: Male

DRUGS (69)
  1. LANSOPRAZOLE. [Suspect]
     Active Substance: LANSOPRAZOLE
     Indication: PROPHYLAXIS
     Dosage: 3 MILLIGRAM, QD
     Route: 048
     Dates: start: 20200710, end: 20200805
  2. MIDAZOLAM. [Suspect]
     Active Substance: MIDAZOLAM
     Indication: SEDATION
     Dosage: 5 MILLIGRAM
     Route: 042
     Dates: start: 20200709, end: 20200713
  3. SERESTA [Suspect]
     Active Substance: OXAZEPAM
     Indication: ANXIOLYTIC THERAPY
     Dosage: 10 MILLIGRAM, QD
     Route: 048
  4. ISUPREL [Suspect]
     Active Substance: ISOPROTERENOL HYDROCHLORIDE
     Indication: PRODUCT USED FOR UNKNOWN INDICATION
     Dosage: UNK
     Route: 065
     Dates: start: 20200711, end: 20200713
  5. OXAZEPAM. [Suspect]
     Active Substance: OXAZEPAM
     Indication: ANXIOLYTIC THERAPY
     Dosage: 10 MILLIGRAM, QD
     Route: 048
  6. OXAZEPAM. [Suspect]
     Active Substance: OXAZEPAM
     Dosage: 20 MILLIGRAM, QD
     Route: 048
  7. LANSOPRAZOLE. [Suspect]
     Active Substance: LANSOPRAZOLE
     Indication: GASTROINTESTINAL DISORDER PROPHYLAXIS
     Dosage: 30 MILLIGRAM, QD
     Route: 048
     Dates: start: 20200710, end: 20200805
  8. LANSOPRAZOLE. [Suspect]
     Active Substance: LANSOPRAZOLE
     Dosage: 78 MILLIGRAM
     Route: 048
  9. URAPIDIL [Suspect]
     Active Substance: URAPIDIL
     Indication: HYPERTENSION
     Dosage: 5 MILLIGRAM, QD
     Route: 042
     Dates: start: 20200709, end: 20200709
  10. MACROGOL [Suspect]
     Active Substance: POLYETHYLENE GLYCOLS
     Indication: CONSTIPATION
     Dosage: UNK UNK, BID
     Route: 048
     Dates: start: 20200713, end: 20200715
  11. IPRATROPIUM [Suspect]
     Active Substance: IPRATROPIUM
     Dosage: 0.5 MILLIGRAM, TID
     Route: 055
     Dates: start: 20200730, end: 20200803
  12. PHOSPHONEUROS [Suspect]
     Active Substance: CALCIUM PHOSPHATE, DIBASIC, ANHYDROUS\MAGNESIUM GLYCEROPHOSPHATE\PHOSPHORIC ACID\SODIUM PHOSPHATE, DIBASIC
     Indication: PNEUMONIA
     Dosage: 6 GRAM, QD
     Route: 042
     Dates: start: 20200708, end: 20200715
  13. DIAMOX                             /00016901/ [Suspect]
     Active Substance: ACETAZOLAMIDE
     Indication: PRODUCT USED FOR UNKNOWN INDICATION
     Dosage: UNK
     Route: 065
  14. TEMESTA                            /00273201/ [Suspect]
     Active Substance: LORAZEPAM
     Indication: ANXIOLYTIC THERAPY
     Dosage: 10 MILLIGRAM, QD
     Route: 048
     Dates: start: 20200726, end: 20200727
  15. MORPHINE SULFATE. [Suspect]
     Active Substance: MORPHINE SULFATE
     Indication: PRODUCT USED FOR UNKNOWN INDICATION
     Dosage: UNK
     Route: 065
  16. KARDEGIC [Concomitant]
     Active Substance: ASPIRIN DL-LYSINE
     Indication: PRODUCT USED FOR UNKNOWN INDICATION
     Dosage: UNK
     Route: 065
  17. LANSOPRAZOLE. [Suspect]
     Active Substance: LANSOPRAZOLE
     Dosage: 3 MILLIGRAM, QD
     Route: 048
     Dates: start: 20200210, end: 20200805
  18. SERTRALINE HCL [Suspect]
     Active Substance: SERTRALINE HYDROCHLORIDE
     Dosage: 746.35 MILLIGRAM
     Route: 048
  19. IPRATROPIUM [Suspect]
     Active Substance: IPRATROPIUM
     Indication: INHALATION THERAPY
     Dosage: 1.5 MILLIGRAM, QD
     Route: 055
     Dates: start: 20200730, end: 20200803
  20. NIMBEX [Suspect]
     Active Substance: CISATRACURIUM BESYLATE
     Indication: ENDOTRACHEAL INTUBATION
     Dosage: 20 MILLIGRAM
     Route: 042
     Dates: start: 20200715, end: 20200715
  21. DUPHALAC [Suspect]
     Active Substance: LACTULOSE
     Indication: CONSTIPATION
     Dosage: 40 GRAM, QD
     Route: 048
     Dates: start: 20200713, end: 20200715
  22. PROPOFOL. [Suspect]
     Active Substance: PROPOFOL
     Indication: SEDATION
     Dosage: 150 MILLIGRAM, Q1HR
     Route: 042
     Dates: start: 20200709, end: 20200720
  23. LORAZEPAM. [Suspect]
     Active Substance: LORAZEPAM
     Indication: ANXIOLYTIC THERAPY
     Dosage: 2.5 MILLIGRAM, QID
     Route: 048
     Dates: start: 20200726, end: 20200727
  24. ISOSORBIDE DINITRATE. [Suspect]
     Active Substance: ISOSORBIDE DINITRATE
     Indication: PRODUCT USED FOR UNKNOWN INDICATION
     Dosage: UNK
     Route: 065
     Dates: start: 20200714, end: 20200720
  25. SERTRALINE HCL [Suspect]
     Active Substance: SERTRALINE HYDROCHLORIDE
     Dosage: 50 MILLIGRAM, QD
     Route: 048
  26. IPRATROPIUM [Suspect]
     Active Substance: IPRATROPIUM
     Dosage: 6 MILLIGRAM
     Route: 055
  27. SUFENTANIL CITRATE. [Suspect]
     Active Substance: SUFENTANIL CITRATE
     Indication: SEDATION
     Dosage: 33 MICROGRAM
     Route: 042
     Dates: start: 20200709, end: 20200717
  28. METHYLPREDNISOLONE. [Suspect]
     Active Substance: METHYLPREDNISOLONE
     Dosage: 1200 MILLIGRAM, QD
     Route: 042
  29. PIPERACILLIN AND TAZOBACTAM [Suspect]
     Active Substance: PIPERACILLIN SODIUM\TAZOBACTAM SODIUM
     Indication: PNEUMONIA
     Dosage: 12 GRAM, QD
     Route: 042
     Dates: start: 20200723, end: 20200730
  30. LOPERAMIDE [Suspect]
     Active Substance: LOPERAMIDE
     Indication: DIARRHOEA
     Dosage: 4 MILLIGRAM, QD
     Route: 048
     Dates: start: 20200804, end: 20200804
  31. ROVAMYCINE                         /00074401/ [Suspect]
     Active Substance: SPIRAMYCIN
     Indication: PNEUMONIA
     Dosage: 9 MEGA-INTERNATIONAL UNIT, QD
     Route: 042
     Dates: start: 20200708, end: 20200715
  32. FUROSEMIDE. [Suspect]
     Active Substance: FUROSEMIDE
     Indication: PRODUCT USED FOR UNKNOWN INDICATION
     Dosage: UNK
     Route: 065
  33. MORPHINE HYDROCHLORIDE [Suspect]
     Active Substance: MORPHINE HYDROCHLORIDE
     Indication: PRODUCT USED FOR UNKNOWN INDICATION
     Dosage: UNK
     Route: 065
  34. PARACETAMOL [Suspect]
     Active Substance: ACETAMINOPHEN
     Indication: PYREXIA
     Dosage: 1 GRAM
     Route: 042
     Dates: start: 20200719, end: 20200730
  35. SERTRALINE HCL [Suspect]
     Active Substance: SERTRALINE HYDROCHLORIDE
     Indication: DEPRESSION
     Dosage: 50 MILLIGRAM, QD
     Route: 048
     Dates: start: 20200726, end: 20200810
  36. DIAZEPAM. [Suspect]
     Active Substance: DIAZEPAM
     Indication: PRODUCT USED FOR UNKNOWN INDICATION
     Dosage: UNK
     Route: 065
  37. FRUSEMIDE                          /00032601/ [Suspect]
     Active Substance: FUROSEMIDE
     Indication: PRODUCT USED FOR UNKNOWN INDICATION
     Dosage: UNK
     Route: 065
  38. PIPERACILLIN AND TAZOBACTAM [Suspect]
     Active Substance: PIPERACILLIN SODIUM\TAZOBACTAM SODIUM
     Dosage: 84 GRAM
     Route: 042
  39. HYDROXYZINE [Suspect]
     Active Substance: HYDROXYZINE HYDROCHLORIDE
     Indication: PRODUCT USED FOR UNKNOWN INDICATION
     Dosage: UNK
     Route: 065
  40. LORAZEPAM. [Suspect]
     Active Substance: LORAZEPAM
     Dosage: 10 MILLIGRAM
     Route: 048
  41. ENOXAPARIN SODIUM. [Suspect]
     Active Substance: ENOXAPARIN SODIUM
     Indication: PHLEBITIS
     Dosage: 6000 INTERNATIONAL UNIT
     Route: 058
  42. TIORFAN [Suspect]
     Active Substance: RACECADOTRIL
     Indication: PRODUCT USED FOR UNKNOWN INDICATION
     Dosage: UNK
     Route: 065
     Dates: start: 20200727, end: 20200804
  43. CEFOTAXIME [Suspect]
     Active Substance: CEFOTAXIME SODIUM
     Indication: PNEUMONIA
     Dosage: 2 GRAM, TID
     Route: 042
     Dates: start: 20200708, end: 20200715
  44. DUPHALAC [Suspect]
     Active Substance: LACTULOSE
     Dosage: 40 MILLIGRAM
     Route: 048
  45. SUFENTANIL CITRATE. [Suspect]
     Active Substance: SUFENTANIL CITRATE
     Indication: GAIT DISTURBANCE
  46. METHYLPREDNISOLONE. [Suspect]
     Active Substance: METHYLPREDNISOLONE
     Indication: ACUTE RESPIRATORY DISTRESS SYNDROME
     Dosage: 1200 MILLIGRAM, QD
     Route: 042
     Dates: start: 20200708, end: 20200723
  47. NORADRENALINE                      /00127501/ [Suspect]
     Active Substance: NOREPINEPHRINE
     Indication: SEDATION
     Dosage: 8 MILLIGRAM
     Route: 042
     Dates: start: 20200709, end: 20200712
  48. SERESTA [Suspect]
     Active Substance: OXAZEPAM
     Indication: ANXIOLYTIC THERAPY
     Dosage: 10 MILLIGRAM, QD
     Route: 048
     Dates: start: 20200802, end: 20200804
  49. SERESTA [Suspect]
     Active Substance: OXAZEPAM
     Dosage: 20 MILLIGRAM, QD
     Route: 048
  50. AMIODARONE [Suspect]
     Active Substance: AMIODARONE
     Indication: ATRIAL FIBRILLATION
     Dosage: 907.2 MILLIGRAM, QD
     Route: 042
     Dates: start: 20200725, end: 20200727
  51. LOVENOX [Suspect]
     Active Substance: ENOXAPARIN SODIUM
     Indication: PHLEBITIS
     Dosage: 6000 INTERNATIONAL UNIT, QD
     Route: 058
     Dates: start: 20200708, end: 20200807
  52. CATAPRESSAN                        /00171102/ [Suspect]
     Active Substance: CLONIDINE HYDROCHLORIDE
     Indication: HYPERTENSION
     Dosage: UNK, QD
     Route: 065
     Dates: start: 20200717, end: 20200717
  53. CEFOTAXIME [Suspect]
     Active Substance: CEFOTAXIME SODIUM
     Dosage: 42 GRAM
     Route: 042
  54. CEFOTAXIME [Suspect]
     Active Substance: CEFOTAXIME SODIUM
     Dosage: 6 GRAM
     Route: 042
  55. METHYLPREDNISOLONE. [Suspect]
     Active Substance: METHYLPREDNISOLONE
     Dosage: 1800 MILLIGRAM
     Route: 042
  56. GLUCONATE DE POTASSIUM [Suspect]
     Active Substance: POTASSIUM GLUCONATE
     Indication: PRODUCT USED FOR UNKNOWN INDICATION
     Dosage: UNK
     Route: 065
  57. BENERVA [Suspect]
     Active Substance: THIAMINE HYDROCHLORIDE
     Indication: PRODUCT USED FOR UNKNOWN INDICATION
     Dosage: UNK
     Route: 065
  58. TEMESTA                            /00273201/ [Suspect]
     Active Substance: LORAZEPAM
     Dosage: 10 MILLIGRAM
     Route: 048
  59. GLUCONATE DE CALCIUM [Suspect]
     Active Substance: CALCIUM GLUCONATE
     Indication: PRODUCT USED FOR UNKNOWN INDICATION
     Dosage: UNK
     Route: 065
  60. DIFFU-K [Suspect]
     Active Substance: POTASSIUM CHLORIDE
     Indication: PRODUCT USED FOR UNKNOWN INDICATION
     Dosage: UNK
     Route: 065
  61. HUMALOG [Suspect]
     Active Substance: INSULIN LISPRO
     Indication: PRODUCT USED FOR UNKNOWN INDICATION
     Dosage: 1 INTERNATIONAL UNIT
     Route: 042
     Dates: start: 20200709, end: 20200730
  62. IMODIUM [Suspect]
     Active Substance: LOPERAMIDE HYDROCHLORIDE
     Dosage: 4 MILLIGRAM, QD
     Route: 048
     Dates: start: 20200804, end: 20200804
  63. ATORVASTATINE                      /01326101/ [Concomitant]
     Active Substance: ATORVASTATIN
     Indication: PRODUCT USED FOR UNKNOWN INDICATION
     Dosage: UNK
     Route: 065
  64. REMIFENTANIL                       /01229902/ [Suspect]
     Active Substance: REMIFENTANIL HYDROCHLORIDE
     Indication: SEDATION
     Dosage: UNK
     Route: 042
     Dates: start: 20200720, end: 20200730
  65. NIMBEX [Suspect]
     Active Substance: CISATRACURIUM BESYLATE
     Indication: NEUROMUSCULAR BLOCKING THERAPY
  66. DUPHALAC [Suspect]
     Active Substance: LACTULOSE
     Dosage: 80 MILLIGRAM
     Route: 048
  67. IMODIUM [Suspect]
     Active Substance: LOPERAMIDE HYDROCHLORIDE
     Indication: DIARRHOEA
     Dosage: UNK
     Route: 065
  68. HYDROXYCARBAMIDE [Concomitant]
     Active Substance: HYDROXYUREA
     Dosage: UNK
  69. AMIODARONE [Concomitant]
     Active Substance: AMIODARONE
     Dosage: UNK
     Dates: start: 20200725, end: 20200727

REACTIONS (1)
  - Toxic epidermal necrolysis [Fatal]

NARRATIVE: CASE EVENT DATE: 20200809
